FAERS Safety Report 9540559 (Version 1)
Quarter: 2013Q3

REPORT INFORMATION
  Report Type: Spontaneous
  Country: US (occurrence: US)
  Receive Date: 20130920
  Receipt Date: 20130920
  Transmission Date: 20140515
  Serious: No
  Sender: FDA-Public Use
  Company Number: US-PFIZER INC-2013271012

PATIENT
  Age: 47 Year
  Sex: Female
  Weight: 109 kg

DRUGS (5)
  1. NEURONTIN [Suspect]
     Indication: FIBROMYALGIA
     Dosage: 800 MG, 2X/DAY
  2. NEURONTIN [Suspect]
     Indication: DIABETIC NEUROPATHY
  3. LANTUS [Concomitant]
     Indication: DIABETES MELLITUS
     Dosage: UNK
  4. LYRICA [Concomitant]
     Indication: FIBROMYALGIA
     Dosage: 200 MG, 1X/DAY
  5. LYRICA [Concomitant]
     Indication: DIABETIC NEUROPATHY

REACTIONS (2)
  - Somnolence [Unknown]
  - Drug ineffective [Unknown]
